FAERS Safety Report 6104638-5 (Version None)
Quarter: 2009Q1

REPORT INFORMATION
  Report Type: 
  Country: None (occurrence: None)
  Receive Date: 20090303
  Receipt Date: 20090223
  Transmission Date: 20090719
  Serious: Yes (Hospitalization, Other)
  Sender: FDA-Public Use
  Company Number: 2008AL008921

PATIENT
  Age: 59 Year
  Sex: Male

DRUGS (7)
  1. DIGOXIN [Suspect]
     Indication: CARDIAC DISORDER
     Dosage: 0.25MG, DAILY, PO
     Route: 048
     Dates: start: 20070401, end: 20071101
  2. WARFARIN SODIUM [Concomitant]
  3. METOPROLOL TARTRATE [Concomitant]
  4. FUROSEMIDE [Concomitant]
  5. LEVOTHYROXINE SODIUM [Concomitant]
  6. SYNTHROID [Concomitant]
  7. LOPRESSOR [Concomitant]

REACTIONS (18)
  - ABDOMINAL PAIN [None]
  - AORTIC VALVE DISEASE [None]
  - BILIARY TRACT DISORDER [None]
  - CARDIAC FAILURE CONGESTIVE [None]
  - COAGULOPATHY [None]
  - DIARRHOEA [None]
  - DIZZINESS [None]
  - DYSPNOEA [None]
  - FATIGUE [None]
  - HAEMATURIA [None]
  - HEART RATE IRREGULAR [None]
  - HEART VALVE REPLACEMENT [None]
  - HYPOTHYROIDISM [None]
  - MALAISE [None]
  - NAUSEA [None]
  - POOR QUALITY SLEEP [None]
  - RENAL DISORDER [None]
  - URETERAL DISORDER [None]
